FAERS Safety Report 8218422-X (Version None)
Quarter: 2012Q1

REPORT INFORMATION
  Report Type: 
  Country: None (occurrence: None)
  Receive Date: 20120319
  Receipt Date: 20120317
  Transmission Date: 20120608
  Serious: Yes (Hospitalization)
  Sender: FDA-Public Use
  Company Number: US-PFIZER INC-2012070180

PATIENT
  Sex: Female
  Weight: 68.934 kg

DRUGS (1)
  1. LIPITOR [Suspect]
     Dosage: 40 MG, DAILY
     Route: 048

REACTIONS (3)
  - DIARRHOEA [None]
  - HYPOAESTHESIA [None]
  - GASTRIC DISORDER [None]
